FAERS Safety Report 4723937-2 (Version None)
Quarter: 2005Q3

REPORT INFORMATION
  Report Type: 
  Country: None (occurrence: None)
  Receive Date: 20050721
  Receipt Date: 20050711
  Transmission Date: 20060218
  Serious: Yes (Other)
  Sender: FDA-Public Use
  Company Number: CHPA2005US01958

PATIENT
  Age: 29 Year
  Sex: Male
  Weight: 88.4 kg

DRUGS (5)
  1. TRANSDERM SCOP [Suspect]
     Indication: NAUSEA
     Dosage: SEE IMAGE
     Route: 062
     Dates: start: 20040701, end: 20040701
  2. TRANSDERM SCOP [Suspect]
     Indication: NAUSEA
     Dosage: SEE IMAGE
     Route: 062
     Dates: start: 20040801, end: 20040801
  3. TRANSDERM SCOP [Suspect]
     Indication: NAUSEA
     Dosage: SEE IMAGE
     Route: 062
     Dates: start: 20040901, end: 20040901
  4. TRANSDERM SCOP [Suspect]
     Indication: NAUSEA
     Dosage: SEE IMAGE
     Route: 062
     Dates: start: 20041001
  5. SUBOXONE (BUPRENORPHINE, NALOXONE) [Concomitant]

REACTIONS (5)
  - DRUG DEPENDENCE [None]
  - DRUG INEFFECTIVE [None]
  - MALAISE [None]
  - RETCHING [None]
  - VOMITING [None]
